FAERS Safety Report 14382200 (Version 2)
Quarter: 2018Q1

REPORT INFORMATION
  Report Type: Spontaneous
  Country: KR (occurrence: KR)
  Receive Date: 20180112
  Receipt Date: 20180201
  Transmission Date: 20180509
  Serious: Yes (Life-Threatening)
  Sender: FDA-Public Use
  Company Number: KR-SA-2018SA003820

PATIENT
  Age: 43 Year
  Sex: Female

DRUGS (4)
  1. LEVOTHYROXINE. [Concomitant]
     Active Substance: LEVOTHYROXINE
     Indication: PAPILLARY THYROID CANCER
     Route: 065
  2. METHIMAZOLE. [Concomitant]
     Active Substance: METHIMAZOLE
     Indication: PAPILLARY THYROID CANCER
     Route: 065
  3. THYROGEN [Suspect]
     Active Substance: THYROTROPIN ALFA
     Dosage: DOSE-1.1
     Route: 065
     Dates: start: 20150812, end: 20150813
  4. IODINE (131 I) [Suspect]
     Active Substance: SODIUM IODIDE I-131
     Indication: THERAPEUTIC PROCEDURE
     Dosage: DOSE: 3700 MBQ
     Route: 065
     Dates: start: 201508

REACTIONS (6)
  - Ocular hyperaemia [Not Recovered/Not Resolved]
  - Colour blindness [Not Recovered/Not Resolved]
  - Endocrine ophthalmopathy [Not Recovered/Not Resolved]
  - Extraocular muscle disorder [Not Recovered/Not Resolved]
  - Eye disorder [Not Recovered/Not Resolved]
  - Inappropriate schedule of drug administration [Unknown]

NARRATIVE: CASE EVENT DATE: 201603
